FAERS Safety Report 6659890-4 (Version None)
Quarter: 2010Q1

REPORT INFORMATION
  Report Type: 
  Country: None (occurrence: None)
  Receive Date: 20100330
  Receipt Date: 20100330
  Transmission Date: 20100710
  Serious: Yes (Other)
  Sender: FDA-Public Use
  Company Number: None

PATIENT
  Age: 57 Year
  Sex: Male
  Weight: 79.3795 kg

DRUGS (1)
  1. SIMVASTATIN [Suspect]
     Indication: HYPERCHOLESTEROLAEMIA
     Dosage: 2 TABS DAILY PO
     Route: 048
     Dates: start: 20091001, end: 20100322

REACTIONS (8)
  - BLOOD PRESSURE DECREASED [None]
  - DIZZINESS POSTURAL [None]
  - DYSPNOEA [None]
  - MUSCLE FATIGUE [None]
  - MUSCULAR WEAKNESS [None]
  - PALLOR [None]
  - PULSE ABNORMAL [None]
  - UPPER RESPIRATORY TRACT INFECTION [None]
